FAERS Safety Report 23090781 (Version 1)
Quarter: 2023Q4

REPORT INFORMATION
  Report Type: Spontaneous
  Country: CH (occurrence: CH)
  Receive Date: 20231020
  Receipt Date: 20231020
  Transmission Date: 20240109
  Serious: Yes (Life-Threatening, Hospitalization, Other)
  Sender: FDA-Public Use
  Company Number: CH-FERRINGPH-2023FE05015

PATIENT

DRUGS (3)
  1. DINOPROSTONE [Suspect]
     Active Substance: DINOPROSTONE
     Indication: Labour induction
     Dosage: 10 MG, ONCE/SINGLE
     Route: 064
     Dates: start: 20230911, end: 20230912
  2. ENOXAPARIN SODIUM [Concomitant]
     Active Substance: ENOXAPARIN SODIUM
     Route: 064
  3. AMOXICILLIN\CLAVULANATE POTASSIUM [Concomitant]
     Active Substance: AMOXICILLIN\CLAVULANATE POTASSIUM
     Route: 064

REACTIONS (2)
  - Neonatal asphyxia [Unknown]
  - Foetal heart rate abnormal [Unknown]

NARRATIVE: CASE EVENT DATE: 20230901
